FAERS Safety Report 10685091 (Version 3)
Quarter: 2015Q3

REPORT INFORMATION
  Report Type: Spontaneous
  Country: US (occurrence: None)
  Receive Date: 20141229
  Receipt Date: 20150924
  Transmission Date: 20151125
  Serious: Yes (Death, Hospitalization)
  Sender: FDA-Public Use
  Company Number: 1713747-2014-999229

PATIENT
  Age: 64 Year
  Sex: Female
  Weight: 61.9 kg

DRUGS (29)
  1. MIRALAX [Concomitant]
     Active Substance: POLYETHYLENE GLYCOL 3350
  2. ZEMPLAR [Concomitant]
     Active Substance: PARICALCITOL
  3. FMC BLOODLINES [Concomitant]
  4. BENADRYL [Concomitant]
     Active Substance: DIPHENHYDRAMINE HYDROCHLORIDE
  5. MELATONIN [Concomitant]
     Active Substance: MELATONIN
  6. NEPHROCAPS [Concomitant]
     Active Substance: ASCORBIC ACID\BIOTIN\CYANOCOBALAMIN\FOLIC ACID\NIACIN\PANTOTHENIC ACID\PYRIDOXINE\RIBOFLAVIN\THIAMINE
  7. 0.9% SODIUM CHLORIDE INJECTION [Suspect]
     Active Substance: SODIUM CHLORIDE
     Indication: CHRONIC KIDNEY DISEASE
     Dosage: 400CC, HEMODIALYSIS
     Dates: start: 201112, end: 201412
  8. NATURALYTE BICARBONATE AND DRY ACID [Concomitant]
  9. VENOFER [Concomitant]
     Active Substance: IRON SUCROSE
  10. NITRODUR PATCH [Concomitant]
  11. OXYCODONE [Concomitant]
     Active Substance: OXYCODONE
  12. ACETAMINOPHEN. [Concomitant]
     Active Substance: ACETAMINOPHEN
  13. ZOLOFT [Concomitant]
     Active Substance: SERTRALINE HYDROCHLORIDE
  14. PRILOSEC [Concomitant]
     Active Substance: OMEPRAZOLE MAGNESIUM
  15. LIPITOR [Concomitant]
     Active Substance: ATORVASTATIN CALCIUM
  16. PHOSLO [Concomitant]
     Active Substance: CALCIUM ACETATE
  17. CYCLOBENZAPRINE [Concomitant]
     Active Substance: CYCLOBENZAPRINE
  18. LABETALOL [Concomitant]
     Active Substance: LABETALOL\LABETALOL HYDROCHLORIDE
  19. PERCOCET [Concomitant]
     Active Substance: ACETAMINOPHEN\OXYCODONE HYDROCHLORIDE
  20. FRESENIUS DIALYZER [Concomitant]
  21. GRANUFLO [Concomitant]
     Active Substance: ACETIC ACID\SODIUM ACETATE
  22. PREDNISONE ACETATE [Concomitant]
     Active Substance: PREDNISONE ACETATE
  23. SENSIPAR [Concomitant]
     Active Substance: CINACALCET HYDROCHLORIDE
  24. PLAVIX [Concomitant]
     Active Substance: CLOPIDOGREL BISULFATE
  25. CINACALCET [Concomitant]
     Active Substance: CINACALCET
  26. CARVEDILOL. [Concomitant]
     Active Substance: CARVEDILOL
  27. GENTAMICIN OINTMENT [Concomitant]
  28. COUMADIN [Concomitant]
     Active Substance: WARFARIN SODIUM
  29. FRESENIUS 2008T HEMODIALYSIS SYSTEM [Concomitant]

REACTIONS (6)
  - Haemodialysis complication [None]
  - Myocardial infarction [None]
  - Cardio-respiratory arrest [None]
  - Pneumonia [None]
  - International normalised ratio increased [None]
  - Pulseless electrical activity [None]

NARRATIVE: CASE EVENT DATE: 20141203
